FAERS Safety Report 7003311-9 (Version None)
Quarter: 2010Q3

REPORT INFORMATION
  Report Type: 
  Country: None (occurrence: None)
  Receive Date: 20100920
  Receipt Date: 20100707
  Transmission Date: 20110219
  Serious: Yes (Other)
  Sender: FDA-Public Use
  Company Number: A0861475A

PATIENT
  Age: 27 Year
  Sex: Male

DRUGS (2)
  1. LAMICTAL [Suspect]
     Dosage: 200MG TWICE PER DAY
     Route: 048
     Dates: start: 20100201
  2. NO CONCURRENT MEDICATION [Concomitant]

REACTIONS (3)
  - CONVULSION [None]
  - DRUG INEFFECTIVE [None]
  - LOSS OF CONSCIOUSNESS [None]
